FAERS Safety Report 5957432-X (Version None)
Quarter: 2008Q4

REPORT INFORMATION
  Report Type: 
  Country: None (occurrence: None)
  Receive Date: 20081114
  Receipt Date: 20081031
  Transmission Date: 20090506
  Serious: Yes (Congenital Anomaly)
  Sender: FDA-Public Use
  Company Number: 035342

PATIENT
  Sex: Male

DRUGS (2)
  1. TAMOXIFEN CITRATE [Suspect]
     Indication: DRUG EXPOSURE DURING PREGNANCY
     Dosage: 20 MG, DAILY, TRANSPLACENTAL
     Route: 064
  2. NORETHINDRONE (NORETHISTERONE) [Concomitant]

REACTIONS (6)
  - MATERNAL DRUGS AFFECTING FOETUS [None]
  - OBSTRUCTIVE AIRWAYS DISORDER [None]
  - PIERRE ROBIN SYNDROME [None]
  - PREMATURE BABY [None]
  - RESPIRATORY DISORDER NEONATAL [None]
  - TALIPES [None]
